FAERS Safety Report 20890405 (Version 6)
Quarter: 2023Q1

REPORT INFORMATION
  Report Type: Spontaneous
  Country: US (occurrence: US)
  Receive Date: 20220530
  Receipt Date: 20230315
  Transmission Date: 20230418
  Serious: No
  Sender: FDA-Public Use
  Company Number: US-BRISTOL-MYERS SQUIBB COMPANY-2022-046716

PATIENT
  Age: 81 Year
  Sex: Female
  Weight: 61.38 kg

DRUGS (3)
  1. REVLIMID [Suspect]
     Active Substance: LENALIDOMIDE
     Indication: Myelodysplastic syndrome
     Dosage: FREQUENCY: D 1-21 Q 28 DAYS
     Route: 048
     Dates: start: 20220428
  2. REVLIMID [Suspect]
     Active Substance: LENALIDOMIDE
     Dosage: FREQUENCY-DAILY X 21 DAYS, EVERY 28 DAYS.
     Route: 048
     Dates: start: 20220428
  3. REVLIMID [Suspect]
     Active Substance: LENALIDOMIDE
     Dosage: FREQUENCY : DAILY ON DAYS 1-21 EVERY 28 DAYS
     Route: 048
     Dates: start: 20220428

REACTIONS (7)
  - Red blood cell count decreased [Recovered/Resolved]
  - Urticaria [Recovered/Resolved]
  - Anaemia [Recovering/Resolving]
  - Fatigue [Recovering/Resolving]
  - Rash [Unknown]
  - COVID-19 [Recovered/Resolved]
  - Blood pressure increased [Recovering/Resolving]

NARRATIVE: CASE EVENT DATE: 20220510
